FAERS Safety Report 4439812-7 (Version None)
Quarter: 2004Q3

REPORT INFORMATION
  Report Type: 
  Country: None (occurrence: None)
  Receive Date: 20040831
  Receipt Date: 20040823
  Transmission Date: 20050211
  Serious: Yes (Other)
  Sender: FDA-Public Use
  Company Number: HQWYE521324AUG04

PATIENT
  Age: 19 Year
  Sex: Male

DRUGS (1)
  1. ADVIL COLD AND SINUS [Suspect]
     Dosage: ^FIVE WITHIN A FEW DAYS^,

REACTIONS (1)
  - MYOCARDIAL INFARCTION [None]
